FAERS Safety Report 9449037 (Version 1)
Quarter: 2013Q3

REPORT INFORMATION
  Report Type: Spontaneous
  Country: DE (occurrence: None)
  Receive Date: 20130806
  Receipt Date: 20130806
  Transmission Date: 20140515
  Serious: Yes (Death)
  Sender: FDA-Public Use
  Company Number: 1828386

PATIENT
  Sex: 0

DRUGS (2)
  1. VINORELBINE TARTRATE [Suspect]
     Indication: NON-SMALL CELL LUNG CANCER STAGE III
  2. CISPLATIN [Suspect]
     Indication: NON-SMALL CELL LUNG CANCER STAGE III

REACTIONS (8)
  - Diabetic complication [None]
  - Prerenal failure [None]
  - Febrile neutropenia [None]
  - Leukopenia [None]
  - Infection [None]
  - Thrombocytopenia [None]
  - Anaemia [None]
  - Toxicity to various agents [None]
